FAERS Safety Report 12703941 (Version 1)
Quarter: 2016Q3

REPORT INFORMATION
  Report Type: Spontaneous
  Country: MT (occurrence: MT)
  Receive Date: 20160831
  Receipt Date: 20160831
  Transmission Date: 20161109
  Serious: Yes (Other)
  Sender: FDA-Public Use
  Company Number: MT-TEVA-686690ISR

PATIENT
  Age: 49 Year
  Sex: Female

DRUGS (1)
  1. LEVOXA [Suspect]
     Active Substance: LEVOFLOXACIN
     Indication: INFECTION
     Dosage: 500 MILLIGRAM DAILY;
     Route: 048

REACTIONS (1)
  - Myocardial infarction [Recovered/Resolved]
